FAERS Safety Report 16796909 (Version 10)
Quarter: 2023Q4

REPORT INFORMATION
  Report Type: Report from Study
  Country: JP (occurrence: JP)
  Receive Date: 20190911
  Receipt Date: 20231207
  Transmission Date: 20240109
  Serious: Yes (Other)
  Sender: FDA-Public Use
  Company Number: JP-JNJFOC-20190907861

PATIENT
  Age: 28 Year
  Sex: Male

DRUGS (5)
  1. EMTRICITABINE\RILPIVIRINE\TENOFOVIR DISOPROXIL FUMARATE [Suspect]
     Active Substance: EMTRICITABINE\RILPIVIRINE\TENOFOVIR DISOPROXIL FUMARATE
     Indication: HIV infection
     Dosage: 1 DOSAGE FORM, QD
     Route: 048
     Dates: start: 20150731, end: 20181001
  2. EMTRICITABINE\RILPIVIRINE HYDROCHLORIDE\TENOFOVIR ALAFENAMIDE FUMARATE [Interacting]
     Active Substance: EMTRICITABINE\RILPIVIRINE HYDROCHLORIDE\TENOFOVIR ALAFENAMIDE FUMARATE
     Indication: HIV infection
     Dosage: 1 DOSAGE FORM, QD
     Route: 048
     Dates: start: 20181002, end: 20230212
  3. VONOPRAZAN FUMARATE [Suspect]
     Active Substance: VONOPRAZAN FUMARATE
     Indication: Gastritis
     Dosage: DOSE UNKNOWN
     Route: 048
     Dates: start: 20200217, end: 20200303
  4. DIETARY SUPPLEMENT\PROBIOTICS [Concomitant]
     Active Substance: DIETARY SUPPLEMENT\PROBIOTICS NOS
     Indication: Product used for unknown indication
     Dosage: DOSE UNKNOWN
     Route: 048
     Dates: start: 20190308, end: 20190407
  5. DIETARY SUPPLEMENT\PROBIOTICS [Concomitant]
     Active Substance: DIETARY SUPPLEMENT\PROBIOTICS NOS
     Dosage: DOSE UNKNOWN
     Route: 048
     Dates: start: 20201030, end: 20201129

REACTIONS (10)
  - Enterocolitis [Recovering/Resolving]
  - Dry skin [Recovering/Resolving]
  - Syphilis [Recovering/Resolving]
  - Hepatitis C [Recovering/Resolving]
  - Gastritis [Recovering/Resolving]
  - Genital herpes [Recovering/Resolving]
  - Seasonal allergy [Recovering/Resolving]
  - Urticaria [Recovering/Resolving]
  - Labelled drug-drug interaction issue [Unknown]
  - Off label use [Unknown]

NARRATIVE: CASE EVENT DATE: 20160307
